FAERS Safety Report 4606146-7 (Version None)
Quarter: 2005Q1

REPORT INFORMATION
  Report Type: 
  Country: None (occurrence: None)
  Receive Date: 20050303
  Receipt Date: 20041210
  Transmission Date: 20050727
  Serious: No
  Sender: FDA-Public Use
  Company Number: 200421150BWH

PATIENT
  Age: 64 Year
  Sex: Male

DRUGS (6)
  1. LEVITRA [Suspect]
     Indication: ERECTILE DYSFUNCTION
     Dosage: 10 MG, TOTAL DAILY, ORAL
     Route: 048
     Dates: start: 20040701
  2. NORVASC [Concomitant]
  3. MICARDIS HCT [Concomitant]
  4. TOPROL-XL [Concomitant]
  5. INSULIN [Concomitant]
  6. ZOCOR [Concomitant]

REACTIONS (1)
  - FLUSHING [None]
